FAERS Safety Report 16121192 (Version 1)
Quarter: 2019Q1

REPORT INFORMATION
  Report Type: Spontaneous
  Country: ES (occurrence: ES)
  Receive Date: 20190327
  Receipt Date: 20190327
  Transmission Date: 20190418
  Serious: Yes (Hospitalization)
  Sender: FDA-Public Use
  Company Number: ES-ACCORD-115339

PATIENT
  Age: 3 Year
  Sex: Female

DRUGS (1)
  1. METHOTREXATE. [Suspect]
     Active Substance: METHOTREXATE
     Indication: ACUTE LYMPHOCYTIC LEUKAEMIA
     Dosage: 5000 MG / M2 / DOSE IN 24 H (PROTOCOL SEHOP-PETHEMA 2015)ALSO TAKE 10 MG BY INTRATHECAL ROUTE
     Route: 042
     Dates: start: 20170426, end: 20170427

REACTIONS (4)
  - Encephalopathy [Recovered/Resolved with Sequelae]
  - Optic nerve disorder [Recovered/Resolved with Sequelae]
  - Depressed level of consciousness [Recovered/Resolved]
  - Generalised tonic-clonic seizure [Recovered/Resolved]

NARRATIVE: CASE EVENT DATE: 20170428
